FAERS Safety Report 12109918 (Version 3)
Quarter: 2016Q2

REPORT INFORMATION
  Report Type: Report from Study
  Country: DE (occurrence: DE)
  Receive Date: 20160224
  Receipt Date: 20160429
  Transmission Date: 20160815
  Serious: Yes (Hospitalization)
  Sender: FDA-Public Use
  Company Number: DE-PFIZER INC-2016093509

PATIENT
  Age: 59 Year
  Sex: Male
  Weight: 86 kg

DRUGS (5)
  1. TEMSIROLIMUS [Suspect]
     Active Substance: TEMSIROLIMUS
     Dosage: 25 MG, UNK
     Dates: start: 20160129
  2. CISPLATIN. [Suspect]
     Active Substance: CISPLATIN
     Dosage: 214 MG, UNK
     Dates: start: 20160131
  3. CYTARABINE. [Suspect]
     Active Substance: CYTARABINE
     Dosage: 8560 MG, UNK
     Dates: start: 20160201
  4. RITUXIMAB [Concomitant]
     Active Substance: RITUXIMAB
     Dosage: 802.5 MG, UNK
     Dates: start: 20160130
  5. DEXAMETHASONE. [Concomitant]
     Active Substance: DEXAMETHASONE
     Dosage: 40 MG, UNK
     Dates: start: 20160131

REACTIONS (1)
  - C-reactive protein increased [Recovered/Resolved]

NARRATIVE: CASE EVENT DATE: 20160212
